FAERS Safety Report 23643957 (Version 1)
Quarter: 2024Q1

REPORT INFORMATION
  Report Type: Spontaneous
  Country: US (occurrence: US)
  Receive Date: 20240318
  Receipt Date: 20240318
  Transmission Date: 20240410
  Serious: Yes (Other)
  Sender: FDA-Public Use
  Company Number: US-BAYER-2024A039863

PATIENT
  Age: 30 Year
  Sex: Male

DRUGS (2)
  1. JIVI [Suspect]
     Active Substance: DAMOCTOCOG ALFA PEGOL
     Dosage: 4600 U, PRN ; 2XW AND AS NEEDED
  2. JIVI [Suspect]
     Active Substance: DAMOCTOCOG ALFA PEGOL
     Dosage: 1 EXTRA DOSE INFUSED
     Dates: start: 20240307, end: 20240307

REACTIONS (3)
  - Haemorrhage [None]
  - Groin pain [None]
  - Arthralgia [None]

NARRATIVE: CASE EVENT DATE: 20240101
